FAERS Safety Report 25844886 (Version 1)
Quarter: 2025Q3

REPORT INFORMATION
  Report Type: Report from Study
  Country: CA (occurrence: CA)
  Receive Date: 20250925
  Receipt Date: 20250925
  Transmission Date: 20251020
  Serious: Yes (Other)
  Sender: CELLTRION
  Company Number: CA-CELLTRION INC.-2025CA033947

PATIENT

DRUGS (5)
  1. OMALIZUMAB [Suspect]
     Active Substance: OMALIZUMAB
     Indication: Chronic spontaneous urticaria
     Route: 058
  2. OMALIZUMAB [Suspect]
     Active Substance: OMALIZUMAB
     Route: 058
  3. OMALIZUMAB [Suspect]
     Active Substance: OMALIZUMAB
     Route: 058
  4. OMALIZUMAB [Suspect]
     Active Substance: OMALIZUMAB
     Route: 058
  5. MONTELUKAST [Suspect]
     Active Substance: MONTELUKAST
     Indication: Product used for unknown indication
     Route: 065

REACTIONS (16)
  - Autoimmune disorder [Unknown]
  - Symptom recurrence [Unknown]
  - Oral pain [Unknown]
  - Mouth ulceration [Unknown]
  - Lip swelling [Unknown]
  - Mouth swelling [Unknown]
  - Wheezing [Unknown]
  - Oropharyngeal pain [Unknown]
  - Nasal congestion [Unknown]
  - Anaphylactic reaction [Unknown]
  - Cough [Unknown]
  - Pyrexia [Unknown]
  - Urticaria [Unknown]
  - Sinusitis [Unknown]
  - Nasopharyngitis [Unknown]
  - Treatment failure [Unknown]
